FAERS Safety Report 8947222 (Version 2)
Quarter: 2015Q1

REPORT INFORMATION
  Report Type: Report from Study
  Country: FR (occurrence: FR)
  Receive Date: 20121205
  Receipt Date: 20150115
  Transmission Date: 20150721
  Serious: Yes (Hospitalization, Other)
  Sender: FDA-Public Use
  Company Number: FR-ROCHE-1162662

PATIENT
  Age: 58 Year
  Sex: Female

DRUGS (4)
  1. RITUXIMAB [Suspect]
     Active Substance: RITUXIMAB
     Indication: RHEUMATOID ARTHRITIS
     Dosage: TWICE (D1)
     Route: 042
     Dates: start: 20061110
  2. PARACETAMOL [Concomitant]
     Active Substance: ACETAMINOPHEN
  3. CORTANCYL [Concomitant]
     Active Substance: PREDNISONE
     Dosage: 22.5MG/DAY, 8MG/DAY AND 60MG/DAY
     Route: 065
  4. METHYLPREDNISOLONE. [Concomitant]
     Active Substance: METHYLPREDNISOLONE
     Indication: PREMEDICATION
     Route: 065

REACTIONS (11)
  - Bladder papilloma [Recovered/Resolved]
  - Hypertension [Recovering/Resolving]
  - Skin infection [Unknown]
  - Incision site abscess [Recovered/Resolved]
  - Carcinoma in situ [Unknown]
  - Bronchopneumonia [Recovered/Resolved]
  - Carotid artery thrombosis [Recovering/Resolving]
  - Dyspnoea [Not Recovered/Not Resolved]
  - Cardiac hypertrophy [Recovering/Resolving]
  - Infusion related reaction [Recovered/Resolved]
  - Urinary tract neoplasm [Unknown]

NARRATIVE: CASE EVENT DATE: 20061110
